FAERS Safety Report 17565744 (Version 2)
Quarter: 2020Q3

REPORT INFORMATION
  Report Type: Spontaneous
  Country: US (occurrence: US)
  Receive Date: 20200320
  Receipt Date: 20200724
  Transmission Date: 20201102
  Serious: Yes (Other)
  Sender: FDA-Public Use
  Company Number: US-TEVA-2020-US-1204226

PATIENT
  Age: 71 Year
  Sex: Female

DRUGS (4)
  1. AUSTEDO [Suspect]
     Active Substance: DEUTETRABENAZINE
     Route: 065
  2. LITHIUM ER 450 [Suspect]
     Active Substance: LITHIUM
     Dosage: 450 MG
     Route: 065
     Dates: start: 20191223
  3. CLONAZEPAM. [Concomitant]
     Active Substance: CLONAZEPAM
  4. VENLAFAXINE [Concomitant]
     Active Substance: VENLAFAXINE HYDROCHLORIDE

REACTIONS (3)
  - Drug hypersensitivity [Unknown]
  - Speech sound disorder [Unknown]
  - Tardive dyskinesia [Recovering/Resolving]

NARRATIVE: CASE EVENT DATE: 201912
